FAERS Safety Report 21759757 (Version 1)
Quarter: 2022Q4

REPORT INFORMATION
  Report Type: Spontaneous
  Country: CA (occurrence: CA)
  Receive Date: 20221221
  Receipt Date: 20221221
  Transmission Date: 20230112
  Serious: Yes (Hospitalization, Other)
  Sender: FDA-Public Use
  Company Number: CA-BAXTER-2022BAX030792

PATIENT
  Age: 48 Year
  Sex: Female
  Weight: 106 kg

DRUGS (62)
  1. DOXORUBICIN [Suspect]
     Active Substance: DOXORUBICIN
     Indication: Breast cancer female
     Dosage: 136.0 MILLIGRAM, 1 EVERY 2 WEEKS, DOSAGE FORM: SOLUTION FOR INJECTION
     Route: 042
  2. DOXORUBICIN [Suspect]
     Active Substance: DOXORUBICIN
     Dosage: 136.0 MILLIGRAM
     Route: 042
  3. DOXORUBICIN [Suspect]
     Active Substance: DOXORUBICIN
     Dosage: 136.0 MILLIGRAM, 1 EVERY 2 WEEKS, DOSAGE FORM: NOT SPECIFIED
     Route: 042
  4. CYCLOPHOSPHAMIDE [Suspect]
     Active Substance: CYCLOPHOSPHAMIDE
     Indication: Tardive dyskinesia
     Dosage: 1360.0 MILLIGRAM, 1 EVERY 2 WEEKS, DOSAGE FORM: POWDER FOR INFUSION
     Route: 042
  5. CYCLOPHOSPHAMIDE [Suspect]
     Active Substance: CYCLOPHOSPHAMIDE
     Indication: Breast cancer female
     Dosage: 1360.0 MILLIGRAM, 1 EVERY 2 WEEKS, DOSAGE FORM: NOT SPECIFIED
     Route: 042
  6. CYCLOPHOSPHAMIDE [Suspect]
     Active Substance: CYCLOPHOSPHAMIDE
     Dosage: DOSAGE FORM: POWDER FOR INFUSION
     Route: 065
  7. ACETAMINOPHEN\CODEINE PHOSPHATE [Suspect]
     Active Substance: ACETAMINOPHEN\CODEINE PHOSPHATE
     Indication: Tardive dyskinesia
     Dosage: 30.0 MILLIGRAM, 1 EVERY 4 HOURS, DOSAGE FORM: TABLET (ELX, USP 160 MG-8MG/5ML)
     Route: 065
  8. ACETAMINOPHEN\CODEINE PHOSPHATE [Suspect]
     Active Substance: ACETAMINOPHEN\CODEINE PHOSPHATE
     Dosage: 30.0 MILLIGRAM, 1 EVERY 1 DAYS, DOSAGE FORM: ELIXIR (ELX, USP 160 MG-8MG/5ML)
     Route: 065
  9. ACETAMINOPHEN\CODEINE PHOSPHATE [Suspect]
     Active Substance: ACETAMINOPHEN\CODEINE PHOSPHATE
     Dosage: 30.0 MILLIGRAM, 1 EVERY 4 HOURS, DOSAGE FORM: TABLET (ELX, USP 160 MG-8MG/5ML)
     Route: 065
  10. APREPITANT [Suspect]
     Active Substance: APREPITANT
     Indication: Supportive care
     Dosage: 80.0 MILLIGRAM, 1 EVERY 1 DAYS, DOSAGE FORM: CAPSULES
     Route: 048
  11. APREPITANT [Suspect]
     Active Substance: APREPITANT
     Dosage: 125.0 MILLIGRAM, DOSAGE FORM: CAPSULES
     Route: 048
  12. APREPITANT [Suspect]
     Active Substance: APREPITANT
     Dosage: 125.0 MILLIGRAM, 1 EVERY 1 DAYS
     Route: 048
  13. APREPITANT [Suspect]
     Active Substance: APREPITANT
     Dosage: 80.0 MILLIGRAM, 1 EVERY 1 DAYS, DOSAGE FORM: CAPSULES
     Route: 048
  14. APREPITANT [Suspect]
     Active Substance: APREPITANT
     Dosage: 125.0 MILLIGRAM, DOSAGE FORM: CAPSULES
     Route: 048
  15. BETAMETHASONE [Suspect]
     Active Substance: BETAMETHASONE
     Indication: Tardive dyskinesia
     Dosage: 2 EVERY 1 DAYS
     Route: 065
  16. BETAMETHASONE [Suspect]
     Active Substance: BETAMETHASONE
     Dosage: 2 EVERY 1 DAYS
     Route: 065
  17. BETAMETHASONE [Suspect]
     Active Substance: BETAMETHASONE
     Dosage: 1 EVERY 12 HOURS
     Route: 048
  18. BETAMETHASONE [Suspect]
     Active Substance: BETAMETHASONE
     Dosage: UNK
     Route: 048
  19. DEXAMETHASONE [Suspect]
     Active Substance: DEXAMETHASONE
     Indication: Supportive care
     Dosage: 20.0 MILLIGRAM, 1 EVERY 1 DAYS, DOSAGE FORM: NOT SPECIFIED
     Route: 048
  20. DEXAMETHASONE [Suspect]
     Active Substance: DEXAMETHASONE
     Dosage: 20.0 MILLIGRAM, 1 EVERY 1 DAYS
     Route: 048
  21. ENOXAPARIN [Suspect]
     Active Substance: ENOXAPARIN
     Indication: Tardive dyskinesia
     Dosage: UNK
     Route: 058
  22. ENOXAPARIN [Suspect]
     Active Substance: ENOXAPARIN
     Dosage: 150.0 MILLIGRAM, 1 EVERY 1 DAYS, DOSAGE FORM: INJECTION
     Route: 058
  23. LEVOFLOXACIN [Suspect]
     Active Substance: LEVOFLOXACIN
     Indication: Tardive dyskinesia
     Dosage: 500.0 ML
     Route: 048
  24. LEVOFLOXACIN [Suspect]
     Active Substance: LEVOFLOXACIN
     Dosage: UNK
     Route: 048
  25. LEVOFLOXACIN [Suspect]
     Active Substance: LEVOFLOXACIN
     Dosage: 500.0 MILLIGRAM, 1 EVERY 1 DAYS, DOSAGE FORM: NOT SPECIFIED
     Route: 048
  26. LORAZEPAM [Suspect]
     Active Substance: LORAZEPAM
     Indication: Tardive dyskinesia
     Dosage: 0.5 MILLIGRAM, 1 EVERY 1 DAYS, DOSAGE FORM: TABLET
     Route: 048
  27. LORAZEPAM [Suspect]
     Active Substance: LORAZEPAM
     Dosage: 0.5 MILLIGRAM, 1 EVERY 12 HOURS, DOSAGE FORM: TABLET
     Route: 048
  28. LORAZEPAM [Suspect]
     Active Substance: LORAZEPAM
     Dosage: 0.5 MILLIGRAM, 2 EVERY 1 DAYS, DOSAGE FORM: TABLET
     Route: 048
  29. LORAZEPAM [Suspect]
     Active Substance: LORAZEPAM
     Dosage: 0.5 MILLIGRAM, 2 EVERY 1 DAYS
     Route: 048
  30. LORAZEPAM [Suspect]
     Active Substance: LORAZEPAM
     Dosage: 0.5 MILLIGRAM, 2 EVERY 1 DAYS, DOSAGE FORM: NOT SPECIFIED
     Route: 048
  31. METOCLOPRAMIDE [Suspect]
     Active Substance: METOCLOPRAMIDE
     Indication: Tardive dyskinesia
     Dosage: 10.0 MILLIGRAM, 4 EVERY 1 DAYS
     Route: 048
  32. METOCLOPRAMIDE [Suspect]
     Active Substance: METOCLOPRAMIDE
     Dosage: 10.0 MILLIGRAM, 1 EVERY 1 DAYS
     Route: 048
  33. METOCLOPRAMIDE [Suspect]
     Active Substance: METOCLOPRAMIDE
     Dosage: 10.0 MILLIGRAM, 1 EVERY 6 HOURS
     Route: 048
  34. NEULASTA [Suspect]
     Active Substance: PEGFILGRASTIM
     Indication: Supportive care
     Dosage: 6.0 MILLIGRAM
     Route: 058
  35. NEULASTA [Suspect]
     Active Substance: PEGFILGRASTIM
     Dosage: 6.0 MILLIGRAM
     Route: 058
  36. NEULASTA [Suspect]
     Active Substance: PEGFILGRASTIM
     Dosage: 6.0 MILLIGRAM, 1 EVERY 1 DAYS, DOSAGE FORM: SOLUTION SUBCUTANEOUS
     Route: 058
  37. NEULASTA [Suspect]
     Active Substance: PEGFILGRASTIM
     Dosage: 6.0 MILLIGRAM, DOSAGE FORM: SOLUTION FOR INFUSION
     Route: 058
  38. NEUPOGEN [Suspect]
     Active Substance: FILGRASTIM
     Indication: Supportive care
     Dosage: 480.0 MICROGRAM, 1 EVERY 1 DAYS
     Route: 065
  39. NEUPOGEN [Suspect]
     Active Substance: FILGRASTIM
     Dosage: 480.0 MICROGRAM, 1 EVERY 1 DAYS, DOSAGE FORM: SOLUTION INTRAVENOUS
     Route: 042
  40. NEUPOGEN [Suspect]
     Active Substance: FILGRASTIM
     Dosage: 125.0 MICROGRAM, 1 EVERY 1 DAYS
     Route: 048
  41. NEUPOGEN [Suspect]
     Active Substance: FILGRASTIM
     Dosage: 480.0 MICROGRAM, 1 EVERY 1 DAYS
     Route: 048
  42. ONDANSETRON [Suspect]
     Active Substance: ONDANSETRON
     Indication: Supportive care
     Dosage: 8.0 MILLIGRAM, 1 EVERY 1 DAYS
     Route: 048
  43. ONDANSETRON [Suspect]
     Active Substance: ONDANSETRON
     Dosage: 8.0 MILLIGRAM
     Route: 048
  44. ONDANSETRON [Suspect]
     Active Substance: ONDANSETRON
     Dosage: UNK
     Route: 065
  45. ONDANSETRON [Suspect]
     Active Substance: ONDANSETRON
     Dosage: 8.0 MILLIGRAM, DOSAGE FORM: NOT SPECIFIED
     Route: 048
  46. ONDANSETRON [Suspect]
     Active Substance: ONDANSETRON
     Dosage: 8.0 MILLIGRAM, 1 EVERY 1 DAYS
     Route: 048
  47. PACLITAXEL [Suspect]
     Active Substance: PACLITAXEL
     Indication: Supportive care
     Dosage: 393.0 MILLIGRAM, 1 EVERY 1 DAYS, DOSAGE FORM: SOLUTION FOR INFUSION
     Route: 042
  48. PACLITAXEL [Suspect]
     Active Substance: PACLITAXEL
     Indication: Breast cancer female
     Dosage: 243.0 MILLIGRAM, 1 EVERY 1 DAYS, DOSAGE FORM: SOLUTION FOR INFUSION
     Route: 042
  49. PACLITAXEL [Suspect]
     Active Substance: PACLITAXEL
     Dosage: 243.0 MILLIGRAM
     Route: 042
  50. PACLITAXEL [Suspect]
     Active Substance: PACLITAXEL
     Dosage: 303.0 MILLIGRAM, DOSAGE FORM: LIQUID INTRAVENOUS
     Route: 042
  51. PACLITAXEL [Suspect]
     Active Substance: PACLITAXEL
     Dosage: 393.0 MILLIGRAM, 1 EVERY 1 DAYS, DOSAGE FORM: SOLUTION FOR INFUSION
     Route: 042
  52. RANITIDINE HYDROCHLORIDE [Suspect]
     Active Substance: RANITIDINE HYDROCHLORIDE
     Indication: Tardive dyskinesia
     Dosage: 150.0 MILLIGRAM, 1 EVERY 2 WEEKS
     Route: 048
  53. RANITIDINE HYDROCHLORIDE [Suspect]
     Active Substance: RANITIDINE HYDROCHLORIDE
     Dosage: 150.0 MILLIGRAM, 2 EVERY 1 DAYS
     Route: 048
  54. RANITIDINE HYDROCHLORIDE [Suspect]
     Active Substance: RANITIDINE HYDROCHLORIDE
     Dosage: UNK
     Route: 048
  55. RANITIDINE HYDROCHLORIDE [Suspect]
     Active Substance: RANITIDINE HYDROCHLORIDE
     Dosage: 150.0 MILLIGRAM, 1 EVERY 12 HOURS
     Route: 048
  56. TRASTUZUMAB [Suspect]
     Active Substance: TRASTUZUMAB
     Indication: Tardive dyskinesia
     Dosage: 626.0 MILLIGRAM, 1 EVERY 1 DAYS
     Route: 065
  57. TRASTUZUMAB [Suspect]
     Active Substance: TRASTUZUMAB
     Dosage: 626.0 MILLIGRAM
     Route: 065
  58. TRASTUZUMAB [Suspect]
     Active Substance: TRASTUZUMAB
     Dosage: 866.0 MILLIGRAM, 1 EVERY 1 DAYS
     Route: 065
  59. TRASTUZUMAB [Suspect]
     Active Substance: TRASTUZUMAB
     Dosage: UNK
     Route: 050
  60. TRASTUZUMAB [Suspect]
     Active Substance: TRASTUZUMAB
     Dosage: 626.0 MILLIGRAM, 1 EVERY 1 DAYS
     Route: 065
  61. TRASTUZUMAB [Suspect]
     Active Substance: TRASTUZUMAB
     Dosage: 866.0 MILLIGRAM, 1 EVERY 1 DAYS
     Route: 065
  62. TRASTUZUMAB [Suspect]
     Active Substance: TRASTUZUMAB
     Dosage: 866.0 MILLIGRAM
     Route: 065

REACTIONS (12)
  - Atelectasis [Recovered/Resolved]
  - Computerised tomogram thorax [Recovered/Resolved]
  - Computerised tomogram thorax abnormal [Recovered/Resolved]
  - Gastrointestinal disorder [Recovered/Resolved]
  - Off label use [Recovered/Resolved]
  - Hypoxia [Recovered/Resolved]
  - Cough [Recovered/Resolved]
  - Dyspnoea [Recovered/Resolved]
  - Fatigue [Recovered/Resolved]
  - Nausea [Recovered/Resolved]
  - Pyrexia [Recovered/Resolved]
  - Rash [Recovered/Resolved]
